FAERS Safety Report 5591197-9 (Version None)
Quarter: 2008Q1

REPORT INFORMATION
  Report Type: 
  Country: None (occurrence: None)
  Receive Date: 20080115
  Receipt Date: 20071127
  Transmission Date: 20080703
  Serious: Yes (Other)
  Sender: FDA-Public Use
  Company Number: GB-BAYER-200717180GPV

PATIENT
  Age: 73 Year
  Sex: Male

DRUGS (5)
  1. ASPIRIN [Suspect]
     Indication: DRUG USE FOR UNKNOWN INDICATION
  2. HYALASE [Suspect]
     Indication: CATARACT OPERATION
     Route: 061
  3. LIDOCAIN [Concomitant]
     Indication: LOCAL ANAESTHESIA
     Route: 061
  4. LEVOBUPIVOCAINE [Concomitant]
     Indication: LOCAL ANAESTHESIA
     Route: 061
  5. CLOPIDOGREL [Concomitant]
     Indication: DRUG USE FOR UNKNOWN INDICATION

REACTIONS (3)
  - EXOPHTHALMOS [None]
  - EYE MOVEMENT DISORDER [None]
  - EYELID OEDEMA [None]
